FAERS Safety Report 10021900 (Version 1)
Quarter: 2014Q1

REPORT INFORMATION
  Report Type: Spontaneous
  Country: US (occurrence: US)
  Receive Date: 20140319
  Receipt Date: 20140319
  Transmission Date: 20141002
  Serious: No
  Sender: FDA-Public Use
  Company Number: US-MYLANLABS-2014S1001218

PATIENT
  Sex: Male

DRUGS (1)
  1. BENAZEPRIL HYDROCHLORIDE AND HYDROCHLOROTHIAZIDE [Suspect]

REACTIONS (2)
  - Blood pressure increased [Not Recovered/Not Resolved]
  - Dizziness [Not Recovered/Not Resolved]
